FAERS Safety Report 19432636 (Version 5)
Quarter: 2021Q3

REPORT INFORMATION
  Report Type: Report from Study
  Country: GB (occurrence: GB)
  Receive Date: 20210617
  Receipt Date: 20210922
  Transmission Date: 20211014
  Serious: Yes (Hospitalization, Other)
  Sender: FDA-Public Use
  Company Number: GB-PFIZER INC-2018212475

PATIENT
  Age: 57 Year
  Sex: Female

DRUGS (74)
  1. PERTUZUMAB. [Suspect]
     Active Substance: PERTUZUMAB
     Dosage: 420 MG, EVERY 3 WEEKS
     Route: 042
     Dates: start: 20150527, end: 20160630
  2. LANSOPRAZOLE. [Concomitant]
     Active Substance: LANSOPRAZOLE
     Indication: PROPHYLAXIS
     Dosage: UNK, UNKNOWN
     Route: 048
     Dates: start: 20150504, end: 20171027
  3. DEXAMETHASONE. [Concomitant]
     Active Substance: DEXAMETHASONE
     Dosage: 1 DF, 1X/DAY
     Route: 048
     Dates: start: 20150506, end: 20150717
  4. AMITRIPTYLINE [Concomitant]
     Active Substance: AMITRIPTYLINE
     Dosage: 10 MG, UNK
     Route: 048
     Dates: start: 201603
  5. ACCRETE D3 [Concomitant]
     Active Substance: CALCIUM CARBONATE\CHOLECALCIFEROL
     Dosage: UNK
     Route: 048
     Dates: end: 20171027
  6. KEPPRA [Concomitant]
     Active Substance: LEVETIRACETAM
     Indication: MUSCLE TWITCHING
     Dosage: UNK UNK, BID  (EVERY 0.5 DAY)
     Route: 048
     Dates: start: 20160811, end: 20161027
  7. IBUPROFEN. [Concomitant]
     Active Substance: IBUPROFEN
     Indication: HEADACHE
     Dosage: 1 DF, 1X/DAY ( 1 TABLET)
     Route: 048
     Dates: start: 20170201
  8. DOCETAXEL. [Suspect]
     Active Substance: DOCETAXEL
     Indication: BREAST CANCER
     Dosage: 130 MG, EVERY 3 WEEKS
     Route: 042
     Dates: start: 20150507, end: 20150903
  9. TRASTUZUMAB. [Suspect]
     Active Substance: TRASTUZUMAB
     Indication: BREAST CANCER
     Dosage: 462 MG, EVERY 3 WEEKS LOADING DOSE
     Route: 042
     Dates: start: 20150506, end: 20150506
  10. TRASTUZUMAB. [Suspect]
     Active Substance: TRASTUZUMAB
     Dosage: 357 MG, EVERY 3 WEEKS
     Route: 042
     Dates: start: 20150527, end: 20160630
  11. DEXAMETHASONE. [Concomitant]
     Active Substance: DEXAMETHASONE
     Dosage: 8 MG, 1X/DAY
     Route: 048
     Dates: start: 20161130, end: 20161201
  12. DEXAMETHASONE. [Concomitant]
     Active Substance: DEXAMETHASONE
     Dosage: 1 DF, 1X/DAY
     Route: 048
     Dates: start: 201607, end: 20160921
  13. DEXAMETHASONE. [Concomitant]
     Active Substance: DEXAMETHASONE
     Dosage: 1 DF, 1X/DAY
     Route: 048
     Dates: start: 201612, end: 20170510
  14. DEXAMETHASONE. [Concomitant]
     Active Substance: DEXAMETHASONE
     Dosage: 2 MG, 1X/DAY
     Route: 048
     Dates: start: 201612, end: 201612
  15. METOCLOPRAMIDE. [Concomitant]
     Active Substance: METOCLOPRAMIDE
     Dosage: 1 DF, 2X/DAY (EVERY 12 HOURS)
     Route: 042
     Dates: start: 20150506, end: 20150903
  16. LACTULOSE. [Concomitant]
     Active Substance: LACTULOSE
     Indication: CONSTIPATION
     Dosage: UNK
     Route: 048
     Dates: start: 20161221, end: 20171021
  17. AMOXICILLIN. [Concomitant]
     Active Substance: AMOXICILLIN
     Indication: OROPHARYNGEAL PAIN
     Dosage: (3 DF, TID (3/DAY) )
     Route: 048
     Dates: start: 20151104, end: 20151111
  18. CALCIUM GLUCONATE. [Concomitant]
     Active Substance: CALCIUM GLUCONATE
     Dosage: UNK
     Dates: end: 20170201
  19. BECLOMETASONE [Concomitant]
     Active Substance: BECLOMETHASONE DIPROPIONATE
     Indication: WHEEZING
     Dosage: UNK
     Route: 050
     Dates: end: 20160108
  20. APREPITANT. [Concomitant]
     Active Substance: APREPITANT
     Indication: PROPHYLAXIS
     Dosage: UNK
     Dates: start: 20150527, end: 20150905
  21. CAPECITABINE. [Suspect]
     Active Substance: CAPECITABINE
     Indication: BREAST CANCER
     Dosage: 1650 MG
     Route: 048
     Dates: start: 20150901
  22. ANASTROZOLE. [Suspect]
     Active Substance: ANASTROZOLE
     Dosage: 1 MG, 1X/DAY
     Route: 048
  23. TRASTUZUMAB EMTANSINE [Suspect]
     Active Substance: ADO-TRASTUZUMAB EMTANSINE
     Indication: BREAST CANCER
     Dosage: 462 MG, WEEKLY
     Route: 042
     Dates: start: 20150506, end: 20150506
  24. DEXAMETHASONE. [Concomitant]
     Active Substance: DEXAMETHASONE
     Dosage: 1 DF, 1X/DAY
     Route: 048
     Dates: start: 20161004, end: 20161123
  25. DEXAMETHASONE. [Concomitant]
     Active Substance: DEXAMETHASONE
     Dosage: 1 DF, 1X/DAY
     Route: 048
     Dates: start: 20170216, end: 20170830
  26. LEVETIRACETAM. [Concomitant]
     Active Substance: LEVETIRACETAM
     Dosage: 1 DF, EVERY 12 HOURS
     Route: 048
     Dates: start: 20160811, end: 20161027
  27. METOCLOPRAMIDE. [Concomitant]
     Active Substance: METOCLOPRAMIDE
     Dosage: 2 DF, 1X/DAY
     Route: 048
     Dates: start: 20170815, end: 2017
  28. SENNA [Concomitant]
     Active Substance: SENNA LEAF\SENNOSIDES\SENNOSIDES A AND B
     Indication: CONSTIPATION
     Dosage: UNK
     Route: 048
     Dates: start: 20161221, end: 20170327
  29. VENTOLIN [Concomitant]
     Active Substance: ALBUTEROL SULFATE
     Indication: WHEEZING
     Dosage: UNK
     Dates: start: 20170621, end: 2017
  30. EXEMESTANE. [Suspect]
     Active Substance: EXEMESTANE
     Dosage: 1 DF, DAILY
     Route: 048
     Dates: start: 201607, end: 20160921
  31. TRASTUZUMAB EMTANSINE [Suspect]
     Active Substance: ADO-TRASTUZUMAB EMTANSINE
     Dosage: 224 MG EVRY 3 WEEKS
     Route: 042
     Dates: start: 20170620, end: 20170830
  32. DEXAMETHASONE. [Concomitant]
     Active Substance: DEXAMETHASONE
     Dosage: 2 MG, 1X/DAY
     Route: 048
     Dates: start: 201612, end: 20170510
  33. CODEINE [Concomitant]
     Active Substance: CODEINE
     Indication: DIARRHOEA
     Dosage: UNK
     Route: 048
     Dates: start: 20150603, end: 20150715
  34. METOCLOPRAMIDE. [Concomitant]
     Active Substance: METOCLOPRAMIDE
     Dosage: UNK
     Route: 048
     Dates: start: 20170815, end: 2017
  35. ONDANSETRON [Concomitant]
     Active Substance: ONDANSETRON
     Dosage: UNK, UNKNOWN
     Route: 048
     Dates: start: 20161111, end: 2016
  36. NITROFURANTOIN. [Concomitant]
     Active Substance: NITROFURANTOIN
     Dosage: UNK
     Dates: start: 20170621, end: 20170623
  37. EXEMESTANE. [Suspect]
     Active Substance: EXEMESTANE
     Indication: BREAST CANCER
     Dosage: 25 MG, 1X/DAY
     Route: 048
     Dates: start: 20090921
  38. EXEMESTANE. [Suspect]
     Active Substance: EXEMESTANE
     Dosage: 25 MG, 1X/DAY
     Route: 048
  39. TRASTUZUMAB. [Suspect]
     Active Substance: TRASTUZUMAB
     Dosage: 357 MG EVERY 3 WEEKS
     Route: 042
     Dates: start: 20170620
  40. VINORELBINE [Suspect]
     Active Substance: VINORELBINE TARTRATE
     Dosage: 100 MG, DAILY
     Route: 048
     Dates: start: 20161111
  41. ANASTROZOLE. [Suspect]
     Active Substance: ANASTROZOLE
     Indication: BREAST CANCER
     Dosage: 1 MG, 1X/DAY
     Route: 048
     Dates: start: 20151021, end: 20171027
  42. DEXAMETHASONE. [Concomitant]
     Active Substance: DEXAMETHASONE
     Dosage: UNK UNK, 1X/DAY
     Route: 048
     Dates: start: 20160713, end: 201607
  43. LACTULOSE. [Concomitant]
     Active Substance: LACTULOSE
     Indication: NEURALGIA
     Dosage: UNK
     Route: 048
     Dates: start: 201603, end: 20171021
  44. COCODAMOL [Concomitant]
     Active Substance: ACETAMINOPHEN\CODEINE PHOSPHATE
     Indication: HEADACHE
     Dosage: UNK
     Route: 048
     Dates: start: 20160929, end: 20171027
  45. PARACETAMOL [Concomitant]
     Active Substance: ACETAMINOPHEN
     Indication: HEADACHE
     Dosage: UNK
     Route: 048
     Dates: start: 20160629, end: 20171027
  46. EXEMESTANE. [Suspect]
     Active Substance: EXEMESTANE
     Dosage: 25 MG, 1X/DAY
     Route: 048
     Dates: start: 20150328
  47. PERTUZUMAB. [Suspect]
     Active Substance: PERTUZUMAB
     Indication: BREAST CANCER
     Dosage: 840 MG EVERY 3 WEEKS LOADING DOSE
     Route: 042
     Dates: start: 20150507, end: 20150507
  48. VINORELBINE [Suspect]
     Active Substance: VINORELBINE TARTRATE
     Dosage: 100 MG, 1X/DAY
     Route: 048
     Dates: start: 20161028, end: 20161028
  49. RAMIPRIL. [Concomitant]
     Active Substance: RAMIPRIL
     Indication: PALPITATIONS
     Dosage: 5 MG, 1X/DAY
     Route: 048
     Dates: start: 20160308, end: 20160602
  50. DEXAMETHASONE. [Concomitant]
     Active Substance: DEXAMETHASONE
     Dosage: 1 DF, 1X/DAY
     Route: 048
     Dates: start: 20161123, end: 20161130
  51. METOCLOPRAMIDE. [Concomitant]
     Active Substance: METOCLOPRAMIDE
     Dosage: UNK, SUBSEQUENT DOSE RECEIVED ON 18/NOV/2016
     Route: 048
     Dates: start: 20160506, end: 2016
  52. BISOPROLOL [Concomitant]
     Active Substance: BISOPROLOL
     Indication: PALPITATIONS
     Dosage: UNK
     Dates: start: 20160602, end: 20171027
  53. ONDANSETRON [Concomitant]
     Active Substance: ONDANSETRON
     Dosage: UNK
     Route: 048
     Dates: start: 20150508, end: 20150904
  54. LOSARTAN. [Concomitant]
     Active Substance: LOSARTAN
     Indication: PALPITATIONS
     Dosage: 50 MG
     Route: 048
     Dates: start: 20160602, end: 20171027
  55. KEPPRA [Concomitant]
     Active Substance: LEVETIRACETAM
     Dosage: UNK UNK, 2X/DAY (EVERY 0.5 DAY)
     Route: 048
     Dates: start: 20160727, end: 20160810
  56. EXEMESTANE. [Suspect]
     Active Substance: EXEMESTANE
     Dosage: 25 MG, 1X/DAY
     Route: 048
     Dates: start: 20151021
  57. TRASTUZUMAB EMTANSINE [Suspect]
     Active Substance: ADO-TRASTUZUMAB EMTANSINE
     Dosage: 357 MG, WEEKLY
     Route: 042
     Dates: start: 20150527, end: 20160630
  58. RAMIPRIL. [Concomitant]
     Active Substance: RAMIPRIL
     Indication: COUGH
     Dosage: UNK
  59. DEXAMETHASONE. [Concomitant]
     Active Substance: DEXAMETHASONE
     Dosage: 1 DF, 1X/DAY
     Route: 048
     Dates: start: 20160713, end: 201607
  60. LEVETIRACETAM. [Concomitant]
     Active Substance: LEVETIRACETAM
     Indication: EPILEPSY
     Dosage: 250 MG
     Route: 048
     Dates: start: 20160727, end: 20171027
  61. LEVETIRACETAM. [Concomitant]
     Active Substance: LEVETIRACETAM
     Dosage: 1 DF, EVERY 12 HOURS
     Route: 048
     Dates: start: 20160727, end: 20160810
  62. METOCLOPRAMIDE. [Concomitant]
     Active Substance: METOCLOPRAMIDE
     Dosage: 2 DF, 1X/DAYSUBSEQUENT DOSE RECEIVED ON 18/NOV/2016
     Route: 048
     Dates: start: 20170301, end: 2017
  63. BISOPROLOL [Concomitant]
     Active Substance: BISOPROLOL
     Dosage: UNK
  64. SPIRONOLACTONE. [Concomitant]
     Active Substance: SPIRONOLACTONE
     Indication: PALPITATIONS
     Dosage: UNK
     Route: 048
     Dates: start: 20160602, end: 20171027
  65. LOSARTAN. [Concomitant]
     Active Substance: LOSARTAN
     Dosage: 50 MG
     Route: 048
  66. QUININE SULFATE. [Concomitant]
     Active Substance: QUININE SULFATE
     Indication: MUSCLE SPASMS
     Dosage: 200 MG
     Route: 048
     Dates: start: 20161123, end: 20171027
  67. CYCLIZINE [Concomitant]
     Active Substance: CYCLIZINE
     Indication: PROPHYLAXIS
     Dosage: 150 MG, DAILY
     Route: 048
     Dates: start: 20150603, end: 20150715
  68. CAPECITABINE. [Suspect]
     Active Substance: CAPECITABINE
     Dosage: 3300 MG
     Route: 048
     Dates: start: 20160901, end: 20160914
  69. VINORELBINE [Suspect]
     Active Substance: VINORELBINE TARTRATE
     Indication: BREAST CANCER
     Dosage: 100 MG, 1X/DAY
     Route: 048
     Dates: start: 20160901, end: 20160930
  70. DEXAMETHASONE. [Concomitant]
     Active Substance: DEXAMETHASONE
     Indication: PREMEDICATION
     Dosage: 2 MG
     Route: 048
     Dates: start: 20150504, end: 20150904
  71. LACTULOSE. [Concomitant]
     Active Substance: LACTULOSE
     Dosage: UNK
     Route: 048
     Dates: start: 20170201, end: 201703
  72. FLUCONAZOLE. [Concomitant]
     Active Substance: FLUCONAZOLE
     Dosage: UNK
     Route: 048
     Dates: start: 20171004, end: 20171004
  73. PEGFILGRASTIM [Concomitant]
     Active Substance: PEGFILGRASTIM
     Dosage: UNK
     Route: 058
     Dates: start: 20150506, end: 20150903
  74. TRIMETHOPRIM. [Concomitant]
     Active Substance: TRIMETHOPRIM
     Indication: URINARY TRACT INFECTION
     Dosage: UNK
     Route: 048
     Dates: start: 20170209, end: 20170216

REACTIONS (32)
  - Seizure [Unknown]
  - Cough [Recovered/Resolved]
  - Headache [Recovered/Resolved]
  - Viral upper respiratory tract infection [Recovered/Resolved]
  - Weight decreased [Unknown]
  - Vaginal discharge [Recovered/Resolved]
  - Nail disorder [Recovered/Resolved]
  - Alopecia [Unknown]
  - Left ventricular dysfunction [Not Recovered/Not Resolved]
  - Palpitations [Not Recovered/Not Resolved]
  - Depressed mood [Not Recovered/Not Resolved]
  - Muscle spasms [Unknown]
  - Muscle twitching [Unknown]
  - Urinary tract infection [Recovered/Resolved]
  - Abdominal pain [Unknown]
  - Poor peripheral circulation [Unknown]
  - Neuralgia [Not Recovered/Not Resolved]
  - Dizziness [Unknown]
  - Nausea [Recovered/Resolved]
  - Diarrhoea [Recovered/Resolved]
  - Rash [Recovered/Resolved]
  - Mucosal inflammation [Unknown]
  - Lacrimation increased [Not Recovered/Not Resolved]
  - Hiccups [Not Recovered/Not Resolved]
  - Constipation [Recovered/Resolved]
  - Chest pain [Recovered/Resolved]
  - Oropharyngeal pain [Recovered/Resolved]
  - Neuropathy peripheral [Not Recovered/Not Resolved]
  - Nail infection [Recovered/Resolved]
  - Fatigue [Not Recovered/Not Resolved]
  - Neuropathy peripheral [Not Recovered/Not Resolved]
  - Nausea [Recovered/Resolved]

NARRATIVE: CASE EVENT DATE: 20150514
